FAERS Safety Report 7574305-X (Version None)
Quarter: 2011Q2

REPORT INFORMATION
  Report Type: 
  Country: None (occurrence: None)
  Receive Date: 20110627
  Receipt Date: 20110509
  Transmission Date: 20111010
  Serious: No
  Sender: FDA-Public Use
  Company Number: US-BAYER-2011-041454

PATIENT
  Age: 63 Year
  Sex: Female
  Weight: 68 kg

DRUGS (2)
  1. ALEVE (CAPLET) [Suspect]
     Indication: ANALGESIC THERAPY
     Dosage: 3 DF, ONCE
     Dates: start: 20110509
  2. METFORMIN HCL [Concomitant]

REACTIONS (3)
  - SOMNOLENCE [None]
  - NO ADVERSE EVENT [None]
  - NAUSEA [None]
